FAERS Safety Report 21214804 (Version 1)
Quarter: 2022Q3

REPORT INFORMATION
  Report Type: Spontaneous
  Country: US (occurrence: US)
  Receive Date: 20220816
  Receipt Date: 20220816
  Transmission Date: 20221027
  Serious: Yes (Hospitalization, Other)
  Sender: FDA-Public Use
  Company Number: US-BRISTOL-MYERS SQUIBB COMPANY-2022-087967

PATIENT
  Age: 95 Year
  Sex: Female

DRUGS (1)
  1. REVLIMID [Suspect]
     Active Substance: LENALIDOMIDE
     Indication: Product used for unknown indication
     Dosage: TAKE 1 CAPSULE (10MG) BY MOUTH EVERY DAY FOR 28 DAYS, THEN REPEAT. DO NOT CRUSH OR OPEN CAPSULES
     Route: 048
     Dates: start: 20220718

REACTIONS (5)
  - Fatigue [Unknown]
  - Dyspnoea [Unknown]
  - Chest pain [Unknown]
  - Cardiac flutter [Unknown]
  - Atrial fibrillation [Unknown]
